FAERS Safety Report 5601309-6 (Version None)
Quarter: 2008Q1

REPORT INFORMATION
  Report Type: 
  Country: None (occurrence: None)
  Receive Date: 20080124
  Receipt Date: 20080114
  Transmission Date: 20080703
  Serious: Yes (Other)
  Sender: FDA-Public Use
  Company Number: B0504270A

PATIENT
  Age: 66 Year
  Sex: Female

DRUGS (8)
  1. AUGMENTIN '125' [Suspect]
     Indication: LUNG INFECTION
     Route: 048
     Dates: start: 20071207
  2. OFLOCET [Suspect]
     Indication: LUNG INFECTION
     Route: 048
     Dates: start: 20071207
  3. SOLUPRED [Suspect]
     Indication: LUNG INFECTION
     Route: 048
     Dates: start: 20071207
  4. LASIX [Concomitant]
     Route: 065
  5. AVLOCARDYL [Concomitant]
     Route: 065
  6. RENITEC [Concomitant]
     Route: 065
  7. APROVEL [Concomitant]
     Route: 065
  8. LYSANXIA [Concomitant]
     Route: 065

REACTIONS (4)
  - DRUG RASH WITH EOSINOPHILIA AND SYSTEMIC SYMPTOMS [None]
  - ERYTHEMA [None]
  - LIP OEDEMA [None]
  - TRANSAMINASES INCREASED [None]
